FAERS Safety Report 23097261 (Version 1)
Quarter: 2023Q4

REPORT INFORMATION
  Report Type: Spontaneous
  Country: US (occurrence: None)
  Receive Date: 20231019
  Receipt Date: 20231019
  Transmission Date: 20240110
  Serious: Yes (Hospitalization)
  Sender: FDA-Public Use
  Company Number: None

PATIENT
  Age: 87 Year
  Sex: Male
  Weight: 80 kg

DRUGS (1)
  1. RIVAROXABAN [Suspect]
     Active Substance: RIVAROXABAN
     Dosage: FREQUENCY : DAILY;?
     Route: 048
     Dates: start: 20220226, end: 20220725

REACTIONS (5)
  - Gastrointestinal haemorrhage [None]
  - Vomiting [None]
  - Asthenia [None]
  - Fatigue [None]
  - Fall [None]

NARRATIVE: CASE EVENT DATE: 20220716
